FAERS Safety Report 17058527 (Version 3)
Quarter: 2020Q2

REPORT INFORMATION
  Report Type: Report from Study
  Country: CA (occurrence: CA)
  Receive Date: 20191121
  Receipt Date: 20200623
  Transmission Date: 20200713
  Serious: Yes (Other)
  Sender: FDA-Public Use
  Company Number: CA-JNJFOC-20191118602

PATIENT
  Age: 67 Year
  Sex: Male
  Weight: 89 kg

DRUGS (2)
  1. REMICADE [Suspect]
     Active Substance: INFLIXIMAB
     Indication: PSORIASIS
     Route: 042
     Dates: start: 20100121
  2. REMICADE [Suspect]
     Active Substance: INFLIXIMAB
     Indication: PSORIATIC ARTHROPATHY
     Dosage: 445 MG,
     Route: 042
     Dates: start: 20091120

REACTIONS (3)
  - Prostatic specific antigen increased [Unknown]
  - Prostate cancer [Unknown]
  - Fibula fracture [Not Recovered/Not Resolved]

NARRATIVE: CASE EVENT DATE: 20191008
